FAERS Safety Report 8524136-9 (Version None)
Quarter: 2012Q2

REPORT INFORMATION
  Report Type: 
  Country: None (occurrence: None)
  Receive Date: 20120406
  Receipt Date: 20110916
  Transmission Date: 20120825
  Serious: Yes (Hospitalization, Other)
  Sender: FDA-Public Use
  Company Number: US-CYPR-2011-000072

PATIENT
  Sex: Male
  Weight: 92.9874 kg

DRUGS (6)
  1. ZETIA [Concomitant]
  2. ASPIRIN [Suspect]
     Indication: CORONARY ARTERY DISEASE
     Dosage: (81 MG QD ORAL)
     Route: 048
     Dates: start: 20060126
  3. CYPHER STENT [Concomitant]
  4. CLOPIDOGREL [Suspect]
     Indication: ANTIPLATELET THERAPY
     Dosage: (75 MG QD ORAL)
     Route: 048
     Dates: start: 20110323, end: 20110911
  5. COREG [Concomitant]
  6. ZOCOR [Concomitant]

REACTIONS (1)
  - CORONARY ARTERY DISEASE [None]
